FAERS Safety Report 7481117-4 (Version None)
Quarter: 2011Q2

REPORT INFORMATION
  Report Type: 
  Country: None (occurrence: None)
  Receive Date: 20110504
  Receipt Date: 20110427
  Transmission Date: 20111010
  Serious: Yes (Death)
  Sender: FDA-Public Use
  Company Number: DSA_45493_2011

PATIENT
  Sex: Male
  Weight: 66.7 kg

DRUGS (5)
  1. HALOPERIDOL [Concomitant]
  2. SEROQUEL [Concomitant]
  3. XENAZINE [Suspect]
     Indication: HUNTINGTON'S DISEASE
     Dosage: (25 MG QD ORAL)
     Route: 048
     Dates: start: 20110124
  4. SERTRALINE HYDROCHLORIDE [Concomitant]
  5. ASPIRIN [Concomitant]

REACTIONS (1)
  - DEATH [None]
